FAERS Safety Report 6583127-8 (Version None)
Quarter: 2010Q1

REPORT INFORMATION
  Report Type: 
  Country: None (occurrence: None)
  Receive Date: 20100216
  Receipt Date: 20100208
  Transmission Date: 20100710
  Serious: Yes (Other)
  Sender: FDA-Public Use
  Company Number: GB-ROCHE-684262

PATIENT
  Sex: Female

DRUGS (2)
  1. BEVACIZUMAB [Suspect]
     Dosage: NUMBER OF AVASTIN INFUSIONS RECEIVED 13. LAST DOSE PRIOR TO SAE: 17 NOVEMBER 2009.
     Route: 065
     Dates: start: 20090310
  2. GLUCOSAMINE [Concomitant]
     Indication: ARTHRITIS
     Dates: start: 19990101

REACTIONS (1)
  - OSTEONECROSIS [None]
